FAERS Safety Report 25062994 (Version 2)
Quarter: 2025Q1

REPORT INFORMATION
  Report Type: Spontaneous
  Country: CN (occurrence: CN)
  Receive Date: 20250311
  Receipt Date: 20250328
  Transmission Date: 20250409
  Serious: Yes (Life-Threatening, Hospitalization, Other)
  Sender: RANBAXY
  Company Number: CN-SUN PHARMACEUTICAL INDUSTRIES LTD-2025R1-497630

PATIENT
  Sex: Male

DRUGS (1)
  1. VALPROATE SODIUM [Suspect]
     Active Substance: VALPROATE SODIUM
     Indication: Epilepsy
     Dosage: 120 MILLIGRAM, BID
     Route: 065

REACTIONS (3)
  - Pancreatitis acute [Recovered/Resolved]
  - Pneumonia [Recovered/Resolved]
  - Supraventricular tachycardia [Recovered/Resolved]
